FAERS Safety Report 24434278 (Version 3)
Quarter: 2024Q4

REPORT INFORMATION
  Report Type: Spontaneous
  Country: IN (occurrence: IN)
  Receive Date: 20241014
  Receipt Date: 20241024
  Transmission Date: 20250114
  Serious: Yes (Death, Other)
  Sender: SANOFI AVENTIS
  Company Number: IN-SA-2024SA273872

PATIENT
  Age: 78 Year
  Sex: Female

DRUGS (4)
  1. LASIX [Suspect]
     Active Substance: FUROSEMIDE
     Indication: Product used for unknown indication
     Dosage: UNK
     Route: 065
  2. LANTUS SOLOSTAR [Suspect]
     Active Substance: INSULIN GLARGINE
     Indication: Product used for unknown indication
     Dosage: UNK
     Route: 065
  3. PHENIRAMINE [Suspect]
     Active Substance: PHENIRAMINE
     Indication: Product used for unknown indication
     Dosage: UNK
     Route: 065
  4. BACILLUS SUBTILIS [Suspect]
     Active Substance: BACILLUS SUBTILIS
     Indication: Product used for unknown indication
     Dosage: UNK
     Route: 065

REACTIONS (1)
  - Death [Fatal]
